FAERS Safety Report 10937965 (Version 2)
Quarter: 2015Q2

REPORT INFORMATION
  Report Type: Spontaneous
  Country: US (occurrence: US)
  Receive Date: 20150321
  Receipt Date: 20150525
  Transmission Date: 20150821
  Serious: No
  Sender: FDA-Public Use
  Company Number: US-JNJFOC-20140502166

PATIENT
  Sex: Male
  Weight: 97.52 kg

DRUGS (4)
  1. VANOS [Concomitant]
     Active Substance: FLUOCINONIDE
     Route: 065
  2. STELARA [Suspect]
     Active Substance: USTEKINUMAB
     Indication: PSORIASIS
     Route: 058
  3. IMIQUIMOD. [Concomitant]
     Active Substance: IMIQUIMOD
     Indication: SKIN PAPILLOMA
     Route: 065
  4. NIZORAL [Concomitant]
     Active Substance: KETOCONAZOLE
     Indication: DERMATITIS
     Route: 065

REACTIONS (1)
  - Psoriasis [Not Recovered/Not Resolved]

NARRATIVE: CASE EVENT DATE: 2014
